FAERS Safety Report 5484773-5 (Version None)
Quarter: 2007Q4

REPORT INFORMATION
  Report Type: 
  Country: None (occurrence: None)
  Receive Date: 20071012
  Receipt Date: 20071002
  Transmission Date: 20080405
  Serious: Yes (Other)
  Sender: FDA-Public Use
  Company Number: NL-PFIZER INC-2007083650

PATIENT
  Sex: Male
  Weight: 66 kg

DRUGS (2)
  1. CHAMPIX [Suspect]
     Indication: SMOKING CESSATION THERAPY
     Route: 048
  2. PHENYTOIN SODIUM [Concomitant]

REACTIONS (3)
  - EPILEPSY [None]
  - SPEECH DISORDER [None]
  - VISUAL DISTURBANCE [None]
